FAERS Safety Report 18227330 (Version 1)
Quarter: 2020Q3

REPORT INFORMATION
  Report Type: Report from Study
  Country: ES (occurrence: ES)
  Receive Date: 20200903
  Receipt Date: 20200903
  Transmission Date: 20201103
  Serious: Yes (Other)
  Sender: FDA-Public Use
  Company Number: ES-VERTEX PHARMACEUTICALS-2020-015626

PATIENT
  Age: 30 Year
  Sex: Female

DRUGS (12)
  1. KALYDECO [Suspect]
     Active Substance: IVACAFTOR
     Indication: CYSTIC FIBROSIS
     Dosage: HALF TABLET IN EVENING
     Route: 048
     Dates: start: 20200720, end: 20200727
  2. BRAMITOB [Concomitant]
     Active Substance: TOBRAMYCIN
     Dosage: 300 MILLIGRAM// 12H CYCLES 28 DAYS INH
  3. AZITHROMYCIN ANHYDROUS. [Concomitant]
     Active Substance: AZITHROMYCIN ANHYDROUS
     Dosage: 500 MILLIGRAM (MONDAY, WEDNESDAY,
  4. AMIKACIN. [Concomitant]
     Active Substance: AMIKACIN
     Dosage: 500 MILLIGRAM/ 12 HRS
  5. KREON 10 000 [Concomitant]
     Active Substance: PANCRELIPASE
     Dosage: UNK
  6. ELEXACAFTOR/TEZACAFTOR/IVACAFTOR [Suspect]
     Active Substance: ELEXACAFTOR\IVACAFTOR\TEZACAFTOR
     Dosage: 2 TABLETS IN MORNING
     Route: 048
     Dates: start: 20200728, end: 20200804
  7. PULMICORT TURBUHALER [Concomitant]
     Active Substance: BUDESONIDE
     Dosage: 0.25 MILLIGRAM/12 HRS
  8. MUCOCLEAR [SODIUM CHLORIDE] [Concomitant]
     Dosage: 12 HRS
  9. ELEXACAFTOR/TEZACAFTOR/IVACAFTOR [Suspect]
     Active Substance: ELEXACAFTOR\IVACAFTOR\TEZACAFTOR
     Indication: CYSTIC FIBROSIS
     Dosage: 1 TABLET IN MORNING
     Route: 048
     Dates: start: 20200720, end: 20200727
  10. NEXIUM I.V. [Concomitant]
     Active Substance: ESOMEPRAZOLE SODIUM
     Dosage: 40 MILLIGRAM/24 HRS.
  11. KALYDECO [Suspect]
     Active Substance: IVACAFTOR
     Dosage: 1 TABLET IN EVENING
     Route: 048
     Dates: start: 20200728, end: 20200804
  12. COMBIPRASAL [Concomitant]
     Active Substance: ALBUTEROL SULFATE\IPRATROPIUM BROMIDE
     Dosage: 1 AMP/ 12 HRS

REACTIONS (2)
  - Transaminases increased [Unknown]
  - Toxic skin eruption [Recovered/Resolved]

NARRATIVE: CASE EVENT DATE: 2020
